FAERS Safety Report 12994795 (Version 1)
Quarter: 2016Q4

REPORT INFORMATION
  Report Type: Spontaneous
  Country: GB (occurrence: GB)
  Receive Date: 20161202
  Receipt Date: 20161202
  Transmission Date: 20170207
  Serious: Yes (Hospitalization)
  Sender: FDA-Public Use
  Company Number: GB-TEVA-715874ACC

PATIENT
  Age: 58 Year
  Sex: Male
  Weight: 72 kg

DRUGS (12)
  1. LACTULOSE. [Concomitant]
     Active Substance: LACTULOSE
  2. SALBUTAMOL [Concomitant]
     Active Substance: ALBUTEROL
     Route: 055
  3. CODEINE [Concomitant]
     Active Substance: CODEINE
  4. ADCAL [Concomitant]
     Active Substance: CALCIUM CARBONATE
  5. CARVEDILOL. [Suspect]
     Active Substance: CARVEDILOL
     Indication: PORTAL HYPERTENSION
     Dosage: 6.25 MILLIGRAM DAILY;
  6. CITALOPRAM [Concomitant]
     Active Substance: CITALOPRAM HYDROBROMIDE
     Dosage: 40 MILLIGRAM DAILY; IN MORNING.
  7. VITAMIN B SUBSTANCES [Concomitant]
  8. THIAMINE. [Concomitant]
     Active Substance: THIAMINE
  9. BUSPIRONE [Suspect]
     Active Substance: BUSPIRONE HYDROCHLORIDE
     Indication: ANXIETY
     Dosage: 30 MILLIGRAM DAILY;
     Route: 048
  10. SPIRONOLACTONE. [Suspect]
     Active Substance: SPIRONOLACTONE
     Indication: ASCITES
     Route: 048
  11. GAVISCON [Concomitant]
     Active Substance: ALUMINUM HYDROXIDE\MAGNESIUM CARBONATE
  12. ZOPICLONE [Suspect]
     Active Substance: ZOPICLONE
     Indication: INSOMNIA
     Dosage: 3.75 GRAM DAILY; AT NIGHT.
     Route: 048

REACTIONS (4)
  - Fall [Recovering/Resolving]
  - Hypotension [Unknown]
  - Blood alcohol increased [Unknown]
  - Mobility decreased [Unknown]
